FAERS Safety Report 9318818 (Version 2)
Quarter: 2013Q2

REPORT INFORMATION
  Report Type: Spontaneous
  Country: JP (occurrence: None)
  Receive Date: 20130524
  Receipt Date: 20130531
  Transmission Date: 20140414
  Serious: No
  Sender: FDA-Public Use
  Company Number: TCI2013A02827

PATIENT
  Age: 50 Year
  Sex: Female

DRUGS (1)
  1. ROZEREM [Suspect]
     Indication: SLEEP DISORDER
     Dosage: 8 MG (8 MG, 1 IN 1 D)
     Route: 048
     Dates: start: 20130508, end: 20130508

REACTIONS (8)
  - Dyspnoea [None]
  - Feeling abnormal [None]
  - Dizziness [None]
  - Palpitations [None]
  - Headache [None]
  - Abnormal sensation in eye [None]
  - Feeling abnormal [None]
  - Sensation of pressure [None]
